FAERS Safety Report 8501543-1 (Version None)
Quarter: 2012Q3

REPORT INFORMATION
  Report Type: 
  Country: None (occurrence: None)
  Receive Date: 20120710
  Receipt Date: 20120705
  Transmission Date: 20120928
  Serious: Yes (Hospitalization, Other)
  Sender: FDA-Public Use
  Company Number: US-PFIZER INC-2012106453

PATIENT
  Age: 61 Year
  Sex: Female
  Weight: 122 kg

DRUGS (3)
  1. DILANTIN [Suspect]
     Indication: EPILEPSY
     Dosage: 300MG IN THE MORNING AND 200 MG AT NIGHT
     Route: 048
  2. PRIMIDONE [Concomitant]
     Indication: GRAND MAL CONVULSION
     Dosage: UNK
  3. DILANTIN [Suspect]
     Indication: GRAND MAL CONVULSION
     Dosage: 550 MG, DAILY

REACTIONS (12)
  - DYSSTASIA [None]
  - DRUG LEVEL CHANGED [None]
  - NERVOUSNESS [None]
  - FEMUR FRACTURE [None]
  - MEMORY IMPAIRMENT [None]
  - VISION BLURRED [None]
  - GAIT DISTURBANCE [None]
  - INSOMNIA [None]
  - HALLUCINATION [None]
  - TOXICITY TO VARIOUS AGENTS [None]
  - AMNESIA [None]
  - SPEECH DISORDER [None]
